FAERS Safety Report 10988167 (Version 2)
Quarter: 2015Q2

REPORT INFORMATION
  Report Type: Spontaneous
  Country: US (occurrence: US)
  Receive Date: 20150404
  Receipt Date: 20150525
  Transmission Date: 20150821
  Serious: Yes (Other)
  Sender: FDA-Public Use
  Company Number: US-JNJFOC-20150116323

PATIENT
  Age: 27 Year
  Sex: Male
  Weight: 68.22 kg

DRUGS (1)
  1. REMICADE [Suspect]
     Active Substance: INFLIXIMAB
     Indication: CROHN^S DISEASE
     Dosage: INFUSED 2-3 HOURS ON WEEK 3,6 AND EVERY 8 WEEKS
     Route: 042
     Dates: start: 20141217

REACTIONS (2)
  - Subcutaneous abscess [Unknown]
  - Abscess limb [Unknown]

NARRATIVE: CASE EVENT DATE: 20150120
